FAERS Safety Report 6360447-3 (Version None)
Quarter: 2009Q3

REPORT INFORMATION
  Report Type: 
  Country: None (occurrence: None)
  Receive Date: 20090817
  Receipt Date: 20090202
  Transmission Date: 20100115
  Serious: No
  Sender: FDA-Public Use
  Company Number: 20085684

PATIENT
  Sex: Female

DRUGS (1)
  1. LIORESAL [Suspect]
     Indication: MUSCLE SPASTICITY
     Dosage: 499 MCG, DAILY, INTRATHECAL
     Route: 037

REACTIONS (4)
  - AFFECT LABILITY [None]
  - CHILLS [None]
  - HYPERAESTHESIA [None]
  - RESTLESSNESS [None]
